FAERS Safety Report 8922239 (Version 1)
Quarter: 2012Q4

REPORT INFORMATION
  Report Type: 
  Country: FR (occurrence: FR)
  Receive Date: 20121123
  Receipt Date: 20121123
  Transmission Date: 20130627
  Serious: Yes (Hospitalization, Other)
  Sender: FDA-Public Use
  Company Number: FR-PFIZER INC-2012251340

PATIENT
  Age: 89 Year
  Sex: Female

DRUGS (4)
  1. LYRICA [Suspect]
     Indication: PAIN
     Dosage: 50 mg, 2x/day
     Route: 048
     Dates: start: 20120813, end: 20120815
  2. KLIPAL CODEINE [Concomitant]
     Indication: PAIN
     Dosage: UNK
     Route: 048
     Dates: start: 20120813, end: 20120815
  3. PERINDOPRIL [Concomitant]
     Dosage: UNK
  4. DEROXAT [Concomitant]
     Dosage: UNK

REACTIONS (4)
  - Dyskinesia [Recovered/Resolved]
  - Renal failure [Unknown]
  - Dehydration [Unknown]
  - Myoclonus [Unknown]
